FAERS Safety Report 6041127-0 (Version None)
Quarter: 2009Q1

REPORT INFORMATION
  Report Type: 
  Country: None (occurrence: None)
  Receive Date: 20090116
  Receipt Date: 20080829
  Transmission Date: 20090719
  Serious: No
  Sender: FDA-Public Use
  Company Number: US-BRISTOL-MYERS SQUIBB COMPANY-14319461

PATIENT
  Sex: Female

DRUGS (2)
  1. ABILIFY [Suspect]
     Dosage: STARTED AT A DOSE OF 2 MG INCREASED TO 5 MG
  2. CYMBALTA [Concomitant]

REACTIONS (1)
  - PAIN [None]
